FAERS Safety Report 20847256 (Version 1)
Quarter: 2022Q2

REPORT INFORMATION
  Report Type: Spontaneous
  Country: US (occurrence: US)
  Receive Date: 20220519
  Receipt Date: 20220519
  Transmission Date: 20220721
  Serious: No
  Sender: FDA-Public Use
  Company Number: US-TEVA-2022-US-2031681

PATIENT
  Age: 74 Year
  Sex: Female
  Weight: 80.29 kg

DRUGS (5)
  1. AJOVY [Suspect]
     Active Substance: FREMANEZUMAB-VFRM
     Indication: Migraine
     Dosage: 225/1.5 MG/ML
     Route: 065
     Dates: start: 20220218
  2. AJOVY [Suspect]
     Active Substance: FREMANEZUMAB-VFRM
  3. LYRICA [Concomitant]
     Active Substance: PREGABALIN
  4. BOTOX [Concomitant]
     Active Substance: ONABOTULINUMTOXINA
     Indication: Migraine
  5. ELIQUIS [Concomitant]
     Active Substance: APIXABAN

REACTIONS (7)
  - Feeling hot [Not Recovered/Not Resolved]
  - Rash pruritic [Not Recovered/Not Resolved]
  - Dyspnoea [Recovering/Resolving]
  - Lacrimation increased [Recovering/Resolving]
  - Rash erythematous [Not Recovered/Not Resolved]
  - Burning sensation [Recovering/Resolving]
  - Inappropriate schedule of product administration [Unknown]

NARRATIVE: CASE EVENT DATE: 20220420
